FAERS Safety Report 18575366 (Version 1)
Quarter: 2020Q4

REPORT INFORMATION
  Report Type: Spontaneous
  Country: US (occurrence: US)
  Receive Date: 20201202
  Receipt Date: 20201202
  Transmission Date: 20210114
  Serious: No
  Sender: FDA-Public Use
  Company Number: None

PATIENT
  Age: 39 Year
  Sex: Male
  Weight: 99.52 kg

DRUGS (2)
  1. DIVALPROEX (DIVALPROEX NA 250MG TAB,SA) [Suspect]
     Active Substance: DIVALPROEX SODIUM
     Indication: AFFECTIVE DISORDER
     Route: 048
     Dates: start: 20180717, end: 20180717
  2. QUETIAPINE (QUETIAPINE FUMARATE 100MG TAB) [Suspect]
     Active Substance: QUETIAPINE FUMARATE
     Indication: AFFECTIVE DISORDER
     Dosage: ?          OTHER FREQUENCY:OTHER;?
     Route: 048
     Dates: start: 20180717, end: 20180717

REACTIONS (1)
  - Priapism [None]

NARRATIVE: CASE EVENT DATE: 20180717
